FAERS Safety Report 4300333-3 (Version None)
Quarter: 2004Q1

REPORT INFORMATION
  Report Type: 
  Country: None (occurrence: None)
  Receive Date: 20040218
  Receipt Date: 20040203
  Transmission Date: 20041129
  Serious: Yes (Death, Other)
  Sender: FDA-Public Use
  Company Number: A0391238A

PATIENT
  Age: 24 Year
  Sex: Female

DRUGS (4)
  1. PAXIL [Suspect]
     Indication: MAJOR DEPRESSION
     Dosage: SEE DOSAGE TEXT/ORAL
     Route: 048
     Dates: start: 20011220
  2. LORAZEPAM [Concomitant]
  3. RISPERIDONE [Concomitant]
  4. SEMISODIUM VALPROATE [Concomitant]

REACTIONS (8)
  - AKATHISIA [None]
  - CHEST INJURY [None]
  - COMPLETED SUICIDE [None]
  - DRUG INTERACTION [None]
  - DRUG LEVEL INCREASED [None]
  - EXTRAPYRAMIDAL DISORDER [None]
  - INTENTIONAL SELF-INJURY [None]
  - PSYCHOTIC DISORDER [None]
